FAERS Safety Report 8142393 (Version 4)
Quarter: 2012Q4

REPORT INFORMATION
  Report Type: Report from Study
  Country: ES (occurrence: ES)
  Receive Date: 20110919
  Receipt Date: 20121105
  Transmission Date: 20130627
  Serious: Yes (Hospitalization, Other)
  Sender: FDA-Public Use
  Company Number: PHHO2011ES15350

PATIENT
  Age: 68 Year
  Sex: Male
  Weight: 72.4 kg

DRUGS (10)
  1. FUROSEMIDE [Suspect]
  2. PLACEBO [Suspect]
     Indication: CARDIAC FAILURE ACUTE
     Route: 048
     Dates: start: 20110317
  3. DOPAMINE [Suspect]
  4. MILRINONE [Suspect]
     Dosage: 200 mg/ 24H
     Dates: start: 20110615
  5. LEVOSIMENDAN [Suspect]
  6. SEGURIL [Concomitant]
     Indication: CARDIAC FAILURE CHRONIC
     Dosage: 40 mg, (80-40-0)
     Dates: start: 20110714
  7. CARVEDILOL [Concomitant]
     Indication: CARDIAC FAILURE CHRONIC
     Dosage: 3.129 mg, BID
     Dates: start: 20110712
  8. PREVENCOR [Concomitant]
     Indication: PROPHYLAXIS
     Dosage: 10 mg, 24 H
     Dates: start: 20110613
  9. INSULINE [Concomitant]
     Indication: TYPE 2 DIABETES MELLITUS
     Dates: start: 20110711
  10. HIGROTON [Concomitant]
     Indication: CARDIAC FAILURE CHRONIC
     Dosage: 25 mg/ 24 H
     Dates: start: 20110709

REACTIONS (1)
  - Renal failure chronic [Recovered/Resolved]
